FAERS Safety Report 7467053-8 (Version None)
Quarter: 2011Q2

REPORT INFORMATION
  Report Type: 
  Country: None (occurrence: None)
  Receive Date: 20110509
  Receipt Date: 20110214
  Transmission Date: 20111010
  Serious: No
  Sender: FDA-Public Use
  Company Number: US-SANOFI-AVENTIS-2011SA010882

PATIENT
  Age: 69 Year
  Sex: Female

DRUGS (5)
  1. LANTUS [Suspect]
     Dates: start: 20100601
  2. LANTUS [Suspect]
     Dosage: DOSE:10 UNIT(S)
     Route: 058
  3. LANTUS [Suspect]
     Dosage: DOSE:14 UNIT(S)
     Route: 058
     Dates: start: 20100601
  4. LANTUS [Suspect]
     Dates: start: 20100101
  5. APIDRA [Suspect]
     Dosage: TOOK 4 UNITS, 6 UNITS, AND 4 UNITS THREE TIMES A DAY.
     Route: 058
     Dates: start: 20100101

REACTIONS (5)
  - ASTHENIA [None]
  - BLOOD GLUCOSE FLUCTUATION [None]
  - EATING DISORDER [None]
  - WEIGHT DECREASED [None]
  - SLEEP DISORDER [None]
